FAERS Safety Report 9013345 (Version 1)
Quarter: 2013Q1

REPORT INFORMATION
  Report Type: Spontaneous
  Country: US (occurrence: None)
  Receive Date: 20130107
  Receipt Date: 20130107
  Transmission Date: 20140127
  Serious: Yes (Hospitalization)
  Sender: FDA-Public Use
  Company Number: None

PATIENT
  Age: 48 Year
  Sex: Female
  Weight: 80.8 kg

DRUGS (2)
  1. VANCOMYCIN? [Suspect]
     Indication: SEPSIS
     Dosage: 14 UNITS EVERY 12 HOURS IV BOLUS
     Route: 040
     Dates: start: 20121003, end: 20121010
  2. VANCOMYCIN? [Suspect]
     Indication: BACTERIAL PYELONEPHRITIS
     Dosage: 14 UNITS EVERY 12 HOURS IV BOLUS
     Route: 040
     Dates: start: 20121003, end: 20121010

REACTIONS (2)
  - Urticaria [None]
  - Blister [None]
